FAERS Safety Report 4928706-6 (Version None)
Quarter: 2006Q1

REPORT INFORMATION
  Report Type: 
  Country: None (occurrence: None)
  Receive Date: 20060301
  Receipt Date: 20060217
  Transmission Date: 20060701
  Serious: Yes (Life-Threatening, Hospitalization)
  Sender: FDA-Public Use
  Company Number: DE-BOEHRINGER INGELHEIM PHARMACEUTICALS, INC.-2006-DE-00924DE

PATIENT
  Sex: Male

DRUGS (6)
  1. AGGRENOX [Suspect]
     Indication: BRAIN STEM INFARCTION
     Route: 048
     Dates: start: 20050907, end: 20050913
  2. LIQUAEMIN INJ [Suspect]
     Indication: BRAIN STEM INFARCTION
     Dosage: 2 X 7500 IE
     Route: 058
     Dates: start: 20050904, end: 20050913
  3. SIMVAHEXAL [Concomitant]
  4. MEDYN [Concomitant]
  5. FOLIC ACID [Concomitant]
  6. MACROGOL MOVICOL [Concomitant]

REACTIONS (12)
  - AFFECT LABILITY [None]
  - AORTIC VALVE STENOSIS [None]
  - BRAIN STEM HAEMORRHAGE [None]
  - CEREBRAL ARTERY STENOSIS [None]
  - DEPRESSED MOOD [None]
  - DYSPHAGIA [None]
  - GLUCOSE TOLERANCE INCREASED [None]
  - HYPOKALAEMIA [None]
  - PLATELET COUNT ABNORMAL [None]
  - SEPSIS [None]
  - THROMBOCYTOPENIA [None]
  - URINARY TRACT INFECTION [None]
